FAERS Safety Report 23542391 (Version 1)
Quarter: 2024Q1

REPORT INFORMATION
  Report Type: Spontaneous
  Country: US (occurrence: US)
  Receive Date: 20240220
  Receipt Date: 20240220
  Transmission Date: 20240410
  Serious: Yes (Hospitalization, Other)
  Sender: FDA-Public Use
  Company Number: US-GSKCCFUS-Case-01936295_AE-107651

PATIENT

DRUGS (1)
  1. OJJAARA [Suspect]
     Active Substance: MOMELOTINIB DIHYDROCHLORIDE MONOHYDRATE
     Indication: Myelofibrosis
     Dosage: UNK
     Route: 048

REACTIONS (10)
  - Pneumonia [Not Recovered/Not Resolved]
  - Productive cough [Unknown]
  - Pyrexia [Unknown]
  - Blood pressure decreased [Unknown]
  - White blood cell count increased [Unknown]
  - Platelet count increased [Unknown]
  - Malaise [Unknown]
  - Heart rate increased [Unknown]
  - Skin wound [Unknown]
  - Blood test abnormal [Unknown]

NARRATIVE: CASE EVENT DATE: 20240204
